FAERS Safety Report 6726030-2 (Version None)
Quarter: 2010Q2

REPORT INFORMATION
  Report Type: 
  Country: None (occurrence: None)
  Receive Date: 20100514
  Receipt Date: 20100506
  Transmission Date: 20101027
  Serious: Yes (Other)
  Sender: FDA-Public Use
  Company Number: US-AMGEN-QUU410863

PATIENT
  Sex: Male

DRUGS (4)
  1. NPLATE [Suspect]
     Indication: IDIOPATHIC THROMBOCYTOPENIC PURPURA
     Dates: start: 20091109
  2. PREDNISONE [Concomitant]
     Dates: start: 20091221
  3. CORTICOSTEROIDS [Concomitant]
  4. IMMU-G [Concomitant]

REACTIONS (4)
  - ACUTE MYELOID LEUKAEMIA [None]
  - MYELODYSPLASTIC SYNDROME [None]
  - NORMOCHROMIC NORMOCYTIC ANAEMIA [None]
  - THERAPEUTIC RESPONSE DECREASED [None]
